FAERS Safety Report 7702187-1 (Version None)
Quarter: 2011Q3

REPORT INFORMATION
  Report Type: 
  Country: None (occurrence: None)
  Receive Date: 20110822
  Receipt Date: 20110818
  Transmission Date: 20111222
  Serious: Yes (Hospitalization)
  Sender: FDA-Public Use
  Company Number: US-ABBOTT-11P-163-0847780-00

PATIENT
  Sex: Female
  Weight: 124.85 kg

DRUGS (3)
  1. LUPRON DEPOT [Suspect]
     Indication: UTERINE LEIOMYOMA
     Dates: start: 20110610
  2. NORETHINDRONE ACETATE [Concomitant]
     Indication: PROPHYLAXIS
  3. NORETHINDRONE ACETATE [Concomitant]
     Indication: BONE DISORDER
     Dates: start: 20110601

REACTIONS (6)
  - CHEST PAIN [None]
  - BLOOD GLUCOSE INCREASED [None]
  - DYSPNOEA [None]
  - PALPITATIONS [None]
  - BLOOD COUNT ABNORMAL [None]
  - HYPERHIDROSIS [None]
